FAERS Safety Report 25372004 (Version 4)
Quarter: 2025Q3

REPORT INFORMATION
  Report Type: Spontaneous
  Country: US (occurrence: US)
  Receive Date: 20250529
  Receipt Date: 20250722
  Transmission Date: 20251020
  Serious: Yes (Hospitalization, Other)
  Sender: AMGEN
  Company Number: US-AMGEN-USASP2025100867

PATIENT
  Age: 61 Year
  Sex: Male

DRUGS (4)
  1. REPATHA [Suspect]
     Active Substance: EVOLOCUMAB
     Indication: Coronary artery disease
     Dosage: 140 MILLIGRAM PER MILLILITRE, Q2WK (ROUTE OF ADMINISTRATION-PEN INJECTOR)
     Route: 065
  2. REPATHA [Suspect]
     Active Substance: EVOLOCUMAB
     Indication: Hypercholesterolaemia
     Route: 065
  3. REPATHA [Suspect]
     Active Substance: EVOLOCUMAB
     Route: 065
  4. REPATHA [Suspect]
     Active Substance: EVOLOCUMAB
     Route: 065

REACTIONS (8)
  - Unevaluable event [Unknown]
  - Diabetes mellitus [Unknown]
  - Device difficult to use [Unknown]
  - Drug dose omission by device [Unknown]
  - Injection site pain [Unknown]
  - Fatigue [Unknown]
  - Confusional state [Unknown]
  - Product storage error [Unknown]

NARRATIVE: CASE EVENT DATE: 20250517
